FAERS Safety Report 25437956 (Version 1)
Quarter: 2025Q2

REPORT INFORMATION
  Report Type: Spontaneous
  Country: US (occurrence: US)
  Receive Date: 20250616
  Receipt Date: 20250616
  Transmission Date: 20250717
  Serious: Yes (Other)
  Sender: CADILA
  Company Number: US-CPL-005406

PATIENT
  Age: 34 Year
  Sex: Female

DRUGS (6)
  1. BUPROPION [Interacting]
     Active Substance: BUPROPION
     Indication: Anxiety
  2. FLUOXETINE [Interacting]
     Active Substance: FLUOXETINE HYDROCHLORIDE
     Indication: Anxiety
  3. PROPOFOL [Interacting]
     Active Substance: PROPOFOL
     Indication: Sedative therapy
     Route: 042
  4. BUPROPION [Interacting]
     Active Substance: BUPROPION
     Indication: Asthma
  5. PROPOFOL [Interacting]
     Active Substance: PROPOFOL
     Indication: Sedative therapy
  6. FLUOXETINE [Interacting]
     Active Substance: FLUOXETINE HYDROCHLORIDE
     Indication: Asthma

REACTIONS (4)
  - Serotonin syndrome [Recovered/Resolved]
  - Drug interaction [Unknown]
  - Antidepressant drug level increased [Unknown]
  - Off label use [Unknown]
